FAERS Safety Report 19367410 (Version 1)
Quarter: 2021Q2

REPORT INFORMATION
  Report Type: Spontaneous
  Country: US (occurrence: US)
  Receive Date: 20210602
  Receipt Date: 20210602
  Transmission Date: 20210717
  Serious: No
  Sender: FDA-Public Use
  Company Number: US-ROCHE-2816524

PATIENT
  Age: 5 Year
  Sex: Female

DRUGS (1)
  1. EVRYSDI [Suspect]
     Active Substance: RISDIPLAM
     Indication: SPINAL MUSCULAR ATROPHY
     Dosage: POWDER FOR ORAL SOLUTION (0.75 MG/1 ML) IN GLASS OF BOTTLE 80 ML US
     Route: 048
     Dates: start: 2021

REACTIONS (3)
  - Product leakage [Unknown]
  - No adverse event [Unknown]
  - Device leakage [Unknown]

NARRATIVE: CASE EVENT DATE: 20210421
